FAERS Safety Report 24554924 (Version 1)
Quarter: 2024Q4

REPORT INFORMATION
  Report Type: Spontaneous
  Country: JP (occurrence: JP)
  Receive Date: 20241028
  Receipt Date: 20241028
  Transmission Date: 20250114
  Serious: Yes (Other)
  Sender: GLAXOSMITHKLINE
  Company Number: JP-GSK-JP2024JPN129622

PATIENT

DRUGS (5)
  1. VALTREX [Suspect]
     Active Substance: VALACYCLOVIR HYDROCHLORIDE
     Indication: Prophylaxis
     Dosage: UNK
  2. RITUXIMAB [Concomitant]
     Active Substance: RITUXIMAB
     Indication: Lymphoma
     Dosage: UNK
  3. ETOPOSIDE [Concomitant]
     Active Substance: ETOPOSIDE
     Indication: Lymphoma
     Dosage: UNK
  4. CISPLATIN [Concomitant]
     Active Substance: CISPLATIN
     Indication: Lymphoma
     Dosage: UNK
  5. CYTARABINE [Concomitant]
     Active Substance: CYTARABINE
     Indication: Lymphoma
     Dosage: UNK

REACTIONS (6)
  - Renal impairment [Unknown]
  - Glomerular vascular disorder [Unknown]
  - Renal tubular necrosis [Unknown]
  - Thrombotic microangiopathy [Unknown]
  - Tubulointerstitial nephritis [Unknown]
  - Product use in unapproved indication [Unknown]
